FAERS Safety Report 9191283 (Version 2)
Quarter: 2013Q2

REPORT INFORMATION
  Report Type: Spontaneous
  Country: US (occurrence: US)
  Receive Date: 20130326
  Receipt Date: 20130430
  Transmission Date: 20140414
  Serious: No
  Sender: FDA-Public Use
  Company Number: US-TEVA-393630USA

PATIENT
  Age: 59 Year
  Sex: Female
  Weight: 52.21 kg

DRUGS (5)
  1. QNASL [Suspect]
     Indication: SEASONAL ALLERGY
     Dosage: 160 MCG - 320 MCG
     Route: 045
  2. NASACORT AQ [Suspect]
  3. ALLEGRA-D [Concomitant]
  4. SINGULAIR [Concomitant]
  5. XYZAL [Concomitant]

REACTIONS (2)
  - Sinusitis [Unknown]
  - Epistaxis [Not Recovered/Not Resolved]
